FAERS Safety Report 14850189 (Version 1)
Quarter: 2018Q2

REPORT INFORMATION
  Report Type: Spontaneous
  Country: US (occurrence: US)
  Receive Date: 20180505
  Receipt Date: 20180505
  Transmission Date: 20180711
  Serious: Yes (Hospitalization, Other)
  Sender: FDA-Public Use
  Company Number: US-ZYDUS-019931

PATIENT
  Age: 3 Month
  Sex: Female

DRUGS (3)
  1. LEVETIRACETAM. [Suspect]
     Active Substance: LEVETIRACETAM
     Indication: PRODUCT USED FOR UNKNOWN INDICATION
     Route: 065
  2. PHENOBARBITAL. [Suspect]
     Active Substance: PHENOBARBITAL
     Indication: PRODUCT USED FOR UNKNOWN INDICATION
     Route: 065
  3. PHENYTOIN. [Suspect]
     Active Substance: PHENYTOIN
     Indication: PRODUCT USED FOR UNKNOWN INDICATION
     Route: 065

REACTIONS (10)
  - Rash morbilliform [Recovered/Resolved]
  - Drug reaction with eosinophilia and systemic symptoms [Recovered/Resolved]
  - Coagulopathy [Recovered/Resolved]
  - Acute hepatic failure [Recovered/Resolved]
  - Cytomegalovirus hepatitis [Recovered/Resolved]
  - Rash [Recovered/Resolved]
  - Cytomegalovirus test positive [Recovered/Resolved]
  - Eosinophilia [Recovered/Resolved]
  - Splenomegaly [Recovered/Resolved]
  - Leukocytosis [Recovered/Resolved]
